FAERS Safety Report 25484027 (Version 7)
Quarter: 2025Q3

REPORT INFORMATION
  Report Type: Report from Study
  Country: US (occurrence: US)
  Receive Date: 20250626
  Receipt Date: 20250815
  Transmission Date: 20251021
  Serious: Yes (Other)
  Sender: MALLINCKRODT
  Company Number: US-MALLINCKRODT-MNK202503929

PATIENT
  Age: 69 Year
  Sex: Male

DRUGS (2)
  1. CORTICOTROPIN [Suspect]
     Active Substance: CORTICOTROPIN
     Indication: Uveitis
     Route: 058
     Dates: start: 20250620, end: 2025
  2. REMICADE [Concomitant]
     Active Substance: INFLIXIMAB

REACTIONS (9)
  - Loss of consciousness [Unknown]
  - Dizziness [Unknown]
  - Cold sweat [Unknown]
  - Fear of injection [Unknown]
  - Feeling abnormal [Unknown]
  - Blood pressure decreased [Recovering/Resolving]
  - Eye haemorrhage [Not Recovered/Not Resolved]
  - Visual impairment [Not Recovered/Not Resolved]
  - Injection site bruising [Recovering/Resolving]

NARRATIVE: CASE EVENT DATE: 20250101
